FAERS Safety Report 4819019-1 (Version None)
Quarter: 2005Q4

REPORT INFORMATION
  Report Type: 
  Country: None (occurrence: None)
  Receive Date: 20051101
  Receipt Date: 20051020
  Transmission Date: 20060501
  Serious: Yes (Other)
  Sender: FDA-Public Use
  Company Number: 2005147317

PATIENT
  Age: 8 Year
  Sex: Male
  Weight: 18.2 kg

DRUGS (1)
  1. GENOTROPIN [Suspect]
     Indication: HYPOPITUITARISM
     Dosage: 0.8MG DAILY (5 TIMES A WEEK), SUBCUTANEOUS
     Route: 058
     Dates: start: 20050121

REACTIONS (1)
  - EPILEPSY [None]
